FAERS Safety Report 21199916 (Version 1)
Quarter: 2022Q3

REPORT INFORMATION
  Report Type: Spontaneous
  Country: US (occurrence: None)
  Receive Date: 20220810
  Receipt Date: 20220810
  Transmission Date: 20221027
  Serious: Yes (Hospitalization)
  Sender: FDA-Public Use
  Company Number: None

PATIENT
  Age: 35 Year
  Sex: Female
  Weight: 56.2 kg

DRUGS (4)
  1. INFED [Suspect]
     Active Substance: IRON DEXTRAN
     Indication: Iron deficiency anaemia
     Dosage: FREQUENCY : ONCE;?
     Route: 042
     Dates: start: 20220719, end: 20220719
  2. Prenatal Vitamin (contains iron + folic acid) [Concomitant]
  3. SERTRALINE [Concomitant]
  4. OMEPRAZOLE [Concomitant]

REACTIONS (7)
  - Dyspnoea [None]
  - Flushing [None]
  - Chest pain [None]
  - Back pain [None]
  - Abdominal pain [None]
  - Maternal exposure during pregnancy [None]
  - Foetal exposure during pregnancy [None]

NARRATIVE: CASE EVENT DATE: 20220719
